FAERS Safety Report 6392834-1 (Version None)
Quarter: 2009Q4

REPORT INFORMATION
  Report Type: 
  Country: None (occurrence: None)
  Receive Date: 20091007
  Receipt Date: 20090914
  Transmission Date: 20100525
  Serious: No
  Sender: FDA-Public Use
  Company Number: US-ALLERGAN-0912119US

PATIENT
  Age: 36 Year
  Sex: Female

DRUGS (1)
  1. LATISSE [Suspect]
     Indication: GROWTH OF EYELASHES
     Dosage: 1 GTT, QHS
     Route: 061
     Dates: start: 20090824, end: 20090825

REACTIONS (10)
  - BLEPHARITIS [None]
  - BURNING SENSATION [None]
  - CONJUNCTIVITIS [None]
  - EYE PAIN [None]
  - EYE PRURITUS [None]
  - EYELIDS PRURITUS [None]
  - HEADACHE [None]
  - LACRIMATION INCREASED [None]
  - OCULAR HYPERAEMIA [None]
  - VISION BLURRED [None]
